FAERS Safety Report 5794322-X (Version None)
Quarter: 2008Q2

REPORT INFORMATION
  Report Type: 
  Country: None (occurrence: None)
  Receive Date: 20080627
  Receipt Date: 20080623
  Transmission Date: 20081010
  Serious: Yes (Other)
  Sender: FDA-Public Use
  Company Number: US-ALLERGAN-0806713US

PATIENT
  Sex: Female
  Weight: 20 kg

DRUGS (3)
  1. BOTOX [Suspect]
     Indication: MUSCLE SPASTICITY
     Dosage: 100 UNITS, SINGLE
     Route: 030
     Dates: start: 20080107, end: 20080107
  2. BOTOX [Suspect]
     Dosage: 100 UNITS, SINGLE
     Route: 030
     Dates: start: 20080512, end: 20080512
  3. TOPAMAX [Concomitant]
     Indication: CONVULSION
     Dosage: UNK, QD
     Route: 048

REACTIONS (1)
  - PETIT MAL EPILEPSY [None]
